FAERS Safety Report 8435102-6 (Version None)
Quarter: 2012Q2

REPORT INFORMATION
  Report Type: 
  Country: None (occurrence: None)
  Receive Date: 20120614
  Receipt Date: 20120606
  Transmission Date: 20120825
  Serious: Yes (Other)
  Sender: FDA-Public Use
  Company Number: PHHY2012IT050357

PATIENT

DRUGS (3)
  1. PREDNISONE TAB [Concomitant]
     Indication: RENAL TRANSPLANT
     Dosage: UNK UKN, UNK
  2. TACROLIMUS [Suspect]
     Dosage: UNK UKN, UNK
  3. MYCOPHENOLATE MOFETIL [Suspect]
     Indication: RENAL TRANSPLANT
     Dosage: UNK UKN, UNK

REACTIONS (3)
  - ANAEMIA [None]
  - NEUTROPENIA [None]
  - GASTROINTESTINAL DISORDER [None]
